FAERS Safety Report 12781897 (Version 2)
Quarter: 2016Q4

REPORT INFORMATION
  Report Type: Spontaneous
  Country: US (occurrence: US)
  Receive Date: 20160926
  Receipt Date: 20161012
  Transmission Date: 20170207
  Serious: No
  Sender: FDA-Public Use
  Company Number: US-ASTRAZENECA-2016SE98318

PATIENT
  Sex: Female

DRUGS (1)
  1. PULMICORT FLEXHALER [Suspect]
     Active Substance: BUDESONIDE
     Dosage: 90MCG, 2 PUFFS TWICE A DAY
     Route: 055
     Dates: start: 20160727

REACTIONS (6)
  - Intentional product misuse [Unknown]
  - Pharyngeal erythema [Unknown]
  - Candida infection [Unknown]
  - Skin depigmentation [Unknown]
  - Circumstance or information capable of leading to medication error [Unknown]
  - Device failure [Unknown]
